FAERS Safety Report 10259886 (Version 1)
Quarter: 2014Q2

REPORT INFORMATION
  Report Type: Spontaneous
  Country: FR (occurrence: FR)
  Receive Date: 20140625
  Receipt Date: 20140625
  Transmission Date: 20141212
  Serious: Yes (Hospitalization)
  Sender: FDA-Public Use
  Company Number: FR-GLAXOSMITHKLINE-B1005120A

PATIENT
  Age: 52 Year
  Sex: Male

DRUGS (7)
  1. FORTUM [Suspect]
     Indication: PYREXIA
     Route: 042
     Dates: start: 20140226, end: 20140303
  2. ETOPOSIDE [Suspect]
     Indication: TRANSPLANT
     Dosage: 190MG SEE DOSAGE TEXT
     Route: 042
     Dates: start: 20140212, end: 20140221
  3. ARACYTINE [Suspect]
     Indication: TRANSPLANT
     Dosage: 375MG SEE DOSAGE TEXT
     Route: 042
     Dates: start: 20140211, end: 20140221
  4. ALKERAN [Suspect]
     Indication: TRANSPLANT
     Dates: start: 20140222, end: 20140222
  5. BICNU [Concomitant]
     Indication: TRANSPLANT
     Route: 065
     Dates: start: 20140211
  6. TAZOCILLINE [Concomitant]
     Indication: SEPSIS
     Dates: start: 20140212, end: 20140226
  7. VANCOMYCINE [Concomitant]
     Indication: SEPSIS
     Dates: start: 20140212, end: 20140219

REACTIONS (6)
  - Hepatic necrosis [Recovering/Resolving]
  - Blood bilirubin increased [Recovering/Resolving]
  - Transaminases increased [Recovering/Resolving]
  - Renal failure [Recovering/Resolving]
  - Portal hypertension [Recovering/Resolving]
  - Ascites [Recovering/Resolving]
